FAERS Safety Report 15251179 (Version 5)
Quarter: 2019Q2

REPORT INFORMATION
  Report Type: Report from Study
  Country: US (occurrence: US)
  Receive Date: 20180807
  Receipt Date: 20190409
  Transmission Date: 20190711
  Serious: Yes (Hospitalization)
  Sender: FDA-Public Use
  Company Number: US-SA-2018SA107788

PATIENT
  Age: 40 Year
  Sex: Female

DRUGS (1)
  1. ALEMTUZUMAB [Suspect]
     Active Substance: ALEMTUZUMAB
     Indication: MULTIPLE SCLEROSIS
     Dosage: 12 MG, QD
     Route: 041
     Dates: start: 20180326, end: 20180330

REACTIONS (8)
  - Body temperature increased [Recovered/Resolved]
  - Heart rate increased [Unknown]
  - Migraine [Recovered/Resolved]
  - Nausea [Not Recovered/Not Resolved]
  - Hepatic enzyme increased [Recovered/Resolved]
  - Flushing [Recovered/Resolved]
  - Headache [Not Recovered/Not Resolved]
  - Anxiety [Unknown]

NARRATIVE: CASE EVENT DATE: 2018
